FAERS Safety Report 9881074 (Version 2)
Quarter: 2014Q2

REPORT INFORMATION
  Report Type: Spontaneous
  Country: US (occurrence: US)
  Receive Date: 20140207
  Receipt Date: 20140414
  Transmission Date: 20141212
  Serious: No
  Sender: FDA-Public Use
  Company Number: US-PFIZER INC-2014033718

PATIENT
  Age: 60 Year
  Sex: Female
  Weight: 119 kg

DRUGS (5)
  1. GABAPENTIN [Suspect]
     Indication: PAIN
     Dosage: UNK
  2. IRON [Concomitant]
     Dosage: UNK
  3. CALCIUM [Concomitant]
     Dosage: UNK
  4. NORCO [Concomitant]
     Dosage: UNK
  5. MULTIVITAMINS [Concomitant]
     Dosage: UNK

REACTIONS (1)
  - Drug ineffective [Unknown]
